FAERS Safety Report 7259284-7 (Version None)
Quarter: 2011Q1

REPORT INFORMATION
  Report Type: 
  Country: None (occurrence: None)
  Receive Date: 20110129
  Receipt Date: 20100816
  Transmission Date: 20110831
  Serious: Yes (Other)
  Sender: FDA-Public Use
  Company Number: US-ABBOTT-10P-163-0664341-00

PATIENT
  Sex: Female
  Weight: 69.462 kg

DRUGS (1)
  1. HUMIRA [Suspect]
     Indication: RHEUMATOID ARTHRITIS
     Route: 058
     Dates: start: 20100101

REACTIONS (4)
  - FUNGAL INFECTION [None]
  - JOINT ARTHROPLASTY [None]
  - ULCER [None]
  - PYREXIA [None]
